FAERS Safety Report 25305402 (Version 1)
Quarter: 2025Q2

REPORT INFORMATION
  Report Type: Spontaneous
  Country: GB (occurrence: GB)
  Receive Date: 20250513
  Receipt Date: 20250513
  Transmission Date: 20250717
  Serious: Yes (Hospitalization, Other)
  Sender: PFIZER
  Company Number: None

PATIENT
  Age: 54 Year
  Sex: Male
  Weight: 101 kg

DRUGS (2)
  1. OXALIPLATIN [Suspect]
     Active Substance: OXALIPLATIN
     Dosage: 280MG D1 Q21
     Dates: start: 20250402, end: 20250507
  2. CAPECITABINE [Suspect]
     Active Substance: CAPECITABINE
     Dates: start: 20250402, end: 20250507

REACTIONS (5)
  - Peripheral artery thrombosis [Recovering/Resolving]
  - Pain in extremity [Unknown]
  - Peripheral coldness [Unknown]
  - Movement disorder [Unknown]
  - Off label use [Unknown]

NARRATIVE: CASE EVENT DATE: 20250508
